FAERS Safety Report 10197899 (Version 1)
Quarter: 2014Q2

REPORT INFORMATION
  Report Type: Spontaneous
  Country: US (occurrence: None)
  Receive Date: 20140523
  Receipt Date: 20140523
  Transmission Date: 20141212
  Serious: No
  Sender: FDA-Public Use
  Company Number: None

PATIENT
  Age: 68 Year
  Sex: Male
  Weight: 86.18 kg

DRUGS (6)
  1. LEUPROLIDE ACETATE [Suspect]
     Indication: PROSTATE CANCER
     Dates: start: 20140508
  2. METFORMIN [Concomitant]
  3. ROSUVASTATIN [Concomitant]
  4. ASPIRIN [Concomitant]
  5. CEPHALEXIN [Concomitant]
  6. CO Q-10 [Concomitant]

REACTIONS (8)
  - Chills [None]
  - Rash [None]
  - Urticaria [None]
  - Lip swelling [None]
  - Dysphagia [None]
  - Nausea [None]
  - Diarrhoea [None]
  - Headache [None]
